FAERS Safety Report 9649285 (Version 1)
Quarter: 2013Q4

REPORT INFORMATION
  Report Type: Report from Study
  Country: BR (occurrence: BR)
  Receive Date: 20131028
  Receipt Date: 20131028
  Transmission Date: 20140711
  Serious: Yes (Life-Threatening, Hospitalization, Other)
  Sender: FDA-Public Use
  Company Number: BR-GLAXOSMITHKLINE-B0936018A

PATIENT
  Sex: Female

DRUGS (16)
  1. AEROLIN [Suspect]
     Indication: DYSPNOEA
     Dosage: 4PUFF PER DAY
     Route: 065
  2. XOLAIR [Suspect]
     Indication: ASTHMA
     Dosage: 150MCG PER DAY
     Route: 058
  3. SALMETEROL [Concomitant]
  4. SPIRIVA [Concomitant]
  5. BUDESONIDE [Concomitant]
  6. SALBUTAMOL [Concomitant]
     Dates: start: 201210
  7. MOTILIUM [Concomitant]
  8. OMEPRAZOLE [Concomitant]
  9. METICORTEN [Concomitant]
  10. BAMIFIX [Concomitant]
     Dates: start: 201207
  11. FLUIMUCIL [Concomitant]
     Dates: start: 20121218
  12. SINGULAIR [Concomitant]
     Dates: start: 201207
  13. INDACATEROL MALEATE [Concomitant]
  14. SERETIDE [Concomitant]
  15. PREDNISOLONE [Concomitant]
  16. ONBREZ [Concomitant]

REACTIONS (19)
  - Bronchiectasis [Not Recovered/Not Resolved]
  - Tuberculosis [Recovered/Resolved]
  - Feeling abnormal [Not Recovered/Not Resolved]
  - Asthma [Recovered/Resolved]
  - Goitre [Not Recovered/Not Resolved]
  - Arrhythmia [Not Recovered/Not Resolved]
  - Rheumatic disorder [Not Recovered/Not Resolved]
  - Dyspnoea [Not Recovered/Not Resolved]
  - Blood pressure abnormal [Not Recovered/Not Resolved]
  - Hypertension [Not Recovered/Not Resolved]
  - Cough [Not Recovered/Not Resolved]
  - Speech disorder [Not Recovered/Not Resolved]
  - General physical health deterioration [Unknown]
  - Arthralgia [Not Recovered/Not Resolved]
  - Fatigue [Not Recovered/Not Resolved]
  - Bone atrophy [Not Recovered/Not Resolved]
  - Malaise [Not Recovered/Not Resolved]
  - Cyanosis [Recovered/Resolved]
  - Weight increased [Not Recovered/Not Resolved]
